FAERS Safety Report 7299093-6 (Version None)
Quarter: 2011Q1

REPORT INFORMATION
  Report Type: 
  Country: None (occurrence: None)
  Receive Date: 20110217
  Receipt Date: 20110211
  Transmission Date: 20110831
  Serious: Yes (Death)
  Sender: FDA-Public Use
  Company Number: DE-PFIZER INC-2011031097

PATIENT

DRUGS (1)
  1. LINEZOLID [Suspect]

REACTIONS (1)
  - LIVER INJURY [None]
